FAERS Safety Report 15962146 (Version 1)
Quarter: 2019Q1

REPORT INFORMATION
  Report Type: Spontaneous
  Country: US (occurrence: US)
  Receive Date: 20190124
  Receipt Date: 20190124
  Transmission Date: 20190417
  Serious: No
  Sender: FDA-Public Use
  Company Number: None

PATIENT

DRUGS (9)
  1. LORATADINE. [Concomitant]
     Active Substance: LORATADINE
  2. LANTUS [Concomitant]
     Active Substance: INSULIN GLARGINE
  3. LISONAPRIL [Concomitant]
  4. SIMVASTIN [Concomitant]
     Active Substance: SIMVASTATIN
  5. PSEUDOEPHEDRINE. [Concomitant]
     Active Substance: PSEUDOEPHEDRINE HYDROCHLORIDE
     Dosage: ?          OTHER FREQUENCY:HALFTAB2XDAY;?
     Route: 048
  6. OMEPRAZOLE. [Concomitant]
     Active Substance: OMEPRAZOLE
  7. FINASTERIDE. [Suspect]
     Active Substance: FINASTERIDE
     Route: 048
     Dates: start: 20181215, end: 20190107
  8. METFORMIN [Concomitant]
     Active Substance: METFORMIN HYDROCHLORIDE
  9. INSULIN NOVALOG [Concomitant]

REACTIONS (1)
  - Dyspnoea [None]
